FAERS Safety Report 7674014-2 (Version None)
Quarter: 2011Q3

REPORT INFORMATION
  Report Type: 
  Country: None (occurrence: None)
  Receive Date: 20110810
  Receipt Date: 20110808
  Transmission Date: 20111222
  Serious: Yes (Other)
  Sender: FDA-Public Use
  Company Number: DE-BRISTOL-MYERS SQUIBB COMPANY-15869555

PATIENT
  Age: 21 Year
  Sex: Female

DRUGS (5)
  1. ALCOHOL [Suspect]
  2. FLUOXETINE [Suspect]
     Dosage: 19 TABLETS OF FLUOXETIN 40
  3. AMOXICILLIN [Suspect]
     Dosage: 20 TABLETS OF AMOXICILLIN 1000
  4. LAMICTAL [Suspect]
     Dosage: AND 19 TABLETS OF LAMICTAL 10
  5. ABILIFY [Suspect]
     Dosage: 27 TABS

REACTIONS (5)
  - CONVULSION [None]
  - DEPRESSED LEVEL OF CONSCIOUSNESS [None]
  - VOMITING [None]
  - SUICIDAL BEHAVIOUR [None]
  - MULTIPLE DRUG OVERDOSE INTENTIONAL [None]
